FAERS Safety Report 10536560 (Version 3)
Quarter: 2017Q2

REPORT INFORMATION
  Report Type: Report from Study
  Country: None (occurrence: BR)
  Receive Date: 20141022
  Receipt Date: 20170530
  Transmission Date: 20170829
  Serious: Yes (Hospitalization, Other)
  Sender: FDA-Public Use
  Company Number: BR-ABBVIE-14K-020-1298113-00

PATIENT
  Sex: Male
  Weight: 63 kg

DRUGS (7)
  1. PARACETAMOL [Concomitant]
     Active Substance: ACETAMINOPHEN
     Indication: PAIN
     Route: 048
  2. HUMIRA [Suspect]
     Active Substance: ADALIMUMAB
     Indication: RHEUMATOID ARTHRITIS
     Route: 058
     Dates: start: 20080110
  3. FOLIC ACID. [Concomitant]
     Active Substance: FOLIC ACID
     Indication: ARTHRITIS
     Route: 048
  4. HUMIRA [Suspect]
     Active Substance: ADALIMUMAB
     Route: 058
  5. TECNOMET [Concomitant]
     Active Substance: METHOTREXATE
     Indication: ARTHRITIS
     Route: 048
  6. DICLOFENAC [Concomitant]
     Active Substance: DICLOFENAC
     Indication: PAIN
     Route: 048
  7. ARTOGLICO [Concomitant]
     Indication: ARTHRITIS
     Dosage: 1 SACHET PER DAY
     Route: 048

REACTIONS (4)
  - Blood cholesterol abnormal [Unknown]
  - Infarction [Recovered/Resolved]
  - Coronary artery occlusion [Recovered/Resolved]
  - Infarction [Recovered/Resolved]

NARRATIVE: CASE EVENT DATE: 2013
